FAERS Safety Report 4332533-0 (Version None)
Quarter: 2004Q2

REPORT INFORMATION
  Report Type: 
  Country: None (occurrence: None)
  Receive Date: 20040401
  Receipt Date: 20040318
  Transmission Date: 20050107
  Serious: Yes (Hospitalization)
  Sender: FDA-Public Use
  Company Number: 2004-06825

PATIENT
  Sex: Female

DRUGS (3)
  1. VIREAD [Suspect]
     Indication: HIV INFECTION
     Dosage: 300 MG QD PO
     Route: 048
  2. DIDANOSINE [Concomitant]
  3. NEVIRAPINE [Concomitant]

REACTIONS (1)
  - NEPHROTIC SYNDROME [None]
